FAERS Safety Report 5726823-4 (Version None)
Quarter: 2008Q2

REPORT INFORMATION
  Report Type: 
  Country: None (occurrence: None)
  Receive Date: 20080502
  Receipt Date: 20080426
  Transmission Date: 20081010
  Serious: Yes (Death, Hospitalization)
  Sender: FDA-Public Use
  Company Number: BR-PFIZER INC-2008032716

PATIENT
  Age: 76 Year
  Sex: Female

DRUGS (2)
  1. XALATAN [Suspect]
     Indication: GLAUCOMA
     Dosage: TEXT:3,0MCG 1X/DAY EVERYDAY TDD:3,0MCG
  2. DRUG, UNSPECIFIED [Concomitant]

REACTIONS (2)
  - HOSPITALISATION [None]
  - MULTI-ORGAN FAILURE [None]
